FAERS Safety Report 13164719 (Version 2)
Quarter: 2017Q4

REPORT INFORMATION
  Report Type: Spontaneous
  Country: US (occurrence: US)
  Receive Date: 20170130
  Receipt Date: 20171211
  Transmission Date: 20180320
  Serious: Yes (Death, Other)
  Sender: FDA-Public Use
  Company Number: US-EMD SERONO-8137707

PATIENT
  Age: 80 Year
  Sex: Male

DRUGS (3)
  1. REBIF [Suspect]
     Active Substance: INTERFERON BETA-1A
     Indication: MULTIPLE SCLEROSIS
     Dates: start: 20070815
  2. REBIF [Suspect]
     Active Substance: INTERFERON BETA-1A
     Route: 058
     Dates: start: 20120713
  3. REBIF [Suspect]
     Active Substance: INTERFERON BETA-1A
     Dosage: STRENGTH 44 MCG/0.5ML
     Route: 058
     Dates: start: 20130917, end: 20161122

REACTIONS (3)
  - Death [Fatal]
  - Myocardial infarction [Unknown]
  - Multiple sclerosis [Unknown]

NARRATIVE: CASE EVENT DATE: 20161122
